FAERS Safety Report 5056830-9 (Version None)
Quarter: 2006Q2

REPORT INFORMATION
  Report Type: 
  Country: None (occurrence: None)
  Receive Date: 20060620
  Receipt Date: 20050822
  Transmission Date: 20061013
  Serious: No
  Sender: FDA-Public Use
  Company Number: 05H-163-0302148-00

PATIENT
  Age: 83 Year
  Sex: Male

DRUGS (2)
  1. HEPARIN SODIUM INJECTION [Suspect]
     Dosage: 25000 UNIT, ONCE, INTRAVENOUS BOLUS
     Route: 040
     Dates: start: 20050526, end: 20050526
  2. MULTIVITAMIN [Concomitant]

REACTIONS (3)
  - HAEMORRHAGE [None]
  - HYPOTENSION [None]
  - MEDICATION ERROR [None]
